FAERS Safety Report 25043300 (Version 1)
Quarter: 2025Q1

REPORT INFORMATION
  Report Type: Other
  Country: PE (occurrence: PE)
  Receive Date: 20250305
  Receipt Date: 20250305
  Transmission Date: 20250408
  Serious: Yes (Other)
  Sender: DENTSPLY
  Company Number: PE-DENTSPLY-2025SCDP000044

PATIENT
  Age: 44 Year
  Sex: Male

DRUGS (2)
  1. LIDOCAINE HYDROCHLORIDE AND EPINEPHRINE BITARTRATE [Suspect]
     Active Substance: EPINEPHRINE BITARTRATE\LIDOCAINE HYDROCHLORIDE
     Indication: Local anaesthesia
  2. SODIUM HYPOCHLORITE [Concomitant]
     Active Substance: SODIUM HYPOCHLORITE
     Indication: Irrigation therapy

REACTIONS (2)
  - Numb chin syndrome [Recovered/Resolved]
  - Injection site pain [Recovered/Resolved]
